FAERS Safety Report 14149245 (Version 8)
Quarter: 2018Q1

REPORT INFORMATION
  Report Type: Report from Study
  Country: DE (occurrence: DE)
  Receive Date: 20171101
  Receipt Date: 20180208
  Transmission Date: 20180508
  Serious: Yes (Hospitalization)
  Sender: FDA-Public Use
  Company Number: DE-ROCHE-2015291

PATIENT
  Age: 45 Year
  Sex: Female
  Weight: 50 kg

DRUGS (33)
  1. ADVANTAN [Concomitant]
     Active Substance: METHYLPREDNISOLONE ACEPONATE
     Indication: RASH
     Route: 061
     Dates: start: 20170809
  2. URBASON [Concomitant]
     Active Substance: METHYLPREDNISOLONE
     Route: 048
     Dates: start: 20171023, end: 20171026
  3. NOVALGIN (METAMIZOLE SODIUM) [Concomitant]
     Active Substance: METAMIZOLE SODIUM
     Indication: HEADACHE
  4. SILOMAT (CLOBUTINOL) [Concomitant]
     Active Substance: CLOBUTINOL
     Indication: COUGH
  5. PANTOPRAZOL [Concomitant]
     Active Substance: PANTOPRAZOLE SODIUM
     Route: 048
     Dates: start: 20170918, end: 20171019
  6. PREDNISOLON [Concomitant]
     Active Substance: PREDNISOLONE
     Route: 048
     Dates: start: 20170929, end: 20171001
  7. COBIMETINIB. [Suspect]
     Active Substance: COBIMETINIB
     Indication: MALIGNANT MELANOMA
     Dosage: 60 MG (THREE, 20 MG TABLETS) PO ONCE A DAY (QD) ON DAYS 1 TO 21?DATE OF MOST RECENT DOSE OF COBIMETI
     Route: 048
     Dates: start: 20170720
  8. BUSCOPAN [Concomitant]
     Active Substance: BUTYLSCOPOLAMINE BROMIDE
     Indication: DYSMENORRHOEA
  9. PARACODIN [Concomitant]
     Active Substance: DIHYDROCODEINE BITARTRATE
     Indication: COUGH
  10. MOMEGALEN [Concomitant]
     Indication: RASH
     Route: 061
     Dates: start: 20170802
  11. PREDNISOLON [Concomitant]
     Active Substance: PREDNISOLONE
     Route: 048
     Dates: start: 20171030, end: 20171101
  12. URBASON [Concomitant]
     Active Substance: METHYLPREDNISOLONE
     Route: 048
     Dates: start: 20171014, end: 20171015
  13. URBASON [Concomitant]
     Active Substance: METHYLPREDNISOLONE
     Route: 048
     Dates: start: 20171016, end: 20171019
  14. AMPHO MORONAL [Concomitant]
     Active Substance: AMPHOTERICIN B
     Route: 065
     Dates: start: 20171023
  15. CAFFEINE/PARACETAMOL [Concomitant]
     Indication: HEADACHE
     Route: 048
  16. URBASON [Concomitant]
     Active Substance: METHYLPREDNISOLONE
     Indication: ARTHRALGIA
     Route: 048
     Dates: start: 20171011, end: 20171013
  17. VEMURAFENIB. [Suspect]
     Active Substance: VEMURAFENIB
     Indication: MALIGNANT MELANOMA
     Dosage: DATE OF MOST RECENT DOSE OF VEMURAFENIB PRIOR TO EVENT ONSET 24/OCT/2017?TOTAL NUMBER OF TABLETS OF
     Route: 048
     Dates: start: 20170720
  18. PREDNISOLON [Concomitant]
     Active Substance: PREDNISOLONE
     Route: 048
     Dates: start: 20170925, end: 20170928
  19. MCP [Concomitant]
     Active Substance: METOCLOPRAMIDE HYDROCHLORIDE
     Indication: MIGRAINE
  20. PANTOPRAZOL [Concomitant]
     Active Substance: PANTOPRAZOLE SODIUM
     Route: 048
     Dates: start: 20171020
  21. ARCOXIA [Concomitant]
     Active Substance: ETORICOXIB
     Route: 048
     Dates: start: 20171016
  22. URBASON [Concomitant]
     Active Substance: METHYLPREDNISOLONE
     Route: 048
     Dates: start: 20171027, end: 20171029
  23. ATEZOLIZUMAB. [Suspect]
     Active Substance: ATEZOLIZUMAB
     Indication: MALIGNANT MELANOMA
     Dosage: DATE OF MOST RECENT DOSE OF ATEZOLIZUMAB PRIOR TO EVENT ONSET 09/OCT/2017
     Route: 042
     Dates: start: 20171009
  24. IBUPROFEN. [Concomitant]
     Active Substance: IBUPROFEN
     Indication: HEADACHE
     Route: 048
  25. FERRO-SANOL DUODENAL [Concomitant]
     Active Substance: FERROUS GLYCINE SULFATE
     Indication: IRON DEFICIENCY ANAEMIA
     Route: 048
     Dates: start: 20170905
  26. PREDNISOLON [Concomitant]
     Active Substance: PREDNISOLONE
     Indication: ARTHRALGIA
     Route: 048
     Dates: start: 20170923, end: 20170924
  27. PREDNISOLON [Concomitant]
     Active Substance: PREDNISOLONE
     Route: 048
     Dates: start: 20171002, end: 20171010
  28. ARCOXIA [Concomitant]
     Active Substance: ETORICOXIB
     Indication: ARTHRALGIA
     Route: 048
     Dates: start: 20170923, end: 20171010
  29. URBASON [Concomitant]
     Active Substance: METHYLPREDNISOLONE
     Route: 048
     Dates: start: 20171020, end: 20171022
  30. RAMIPRIL. [Concomitant]
     Active Substance: RAMIPRIL
     Route: 048
     Dates: start: 20171024
  31. PREDNISOLON [Concomitant]
     Active Substance: PREDNISOLONE
     Route: 048
     Dates: start: 20171102
  32. ARCOXIA [Concomitant]
     Active Substance: ETORICOXIB
     Route: 048
     Dates: start: 20171011, end: 20171015
  33. RAMIPRIL. [Concomitant]
     Active Substance: RAMIPRIL
     Indication: HYPERTENSION
     Route: 048
     Dates: start: 20171019, end: 20171023

REACTIONS (3)
  - Encephalitis [Recovered/Resolved]
  - Oesophagitis [Not Recovered/Not Resolved]
  - Pneumonitis [Not Recovered/Not Resolved]

NARRATIVE: CASE EVENT DATE: 20171023
